FAERS Safety Report 22328876 (Version 1)
Quarter: 2023Q2

REPORT INFORMATION
  Report Type: Spontaneous
  Country: US (occurrence: US)
  Receive Date: 20230517
  Receipt Date: 20230517
  Transmission Date: 20230722
  Serious: No
  Sender: FDA-Public Use
  Company Number: US-RADIUS HEALTH INC.-2023US000884

PATIENT
  Sex: Female

DRUGS (2)
  1. TYMLOS [Suspect]
     Active Substance: ABALOPARATIDE
     Indication: Product used for unknown indication
     Dosage: 80 MICROGRAM, QD
     Route: 058
  2. TYMLOS [Suspect]
     Active Substance: ABALOPARATIDE
     Dosage: FEW CLICKS BEFORE 80MCG ON PEN
     Route: 058

REACTIONS (6)
  - Brain fog [Unknown]
  - Palpitations [Unknown]
  - Dizziness [Unknown]
  - Injection site reaction [Unknown]
  - Intentional product misuse [Unknown]
  - Product dose omission issue [Unknown]
